FAERS Safety Report 15536127 (Version 2)
Quarter: 2020Q1

REPORT INFORMATION
  Report Type: Report from Study
  Country: US (occurrence: US)
  Receive Date: 20181022
  Receipt Date: 20200327
  Transmission Date: 20200409
  Serious: No
  Sender: FDA-Public Use
  Company Number: US-TEVA-2018-US-964790

PATIENT
  Age: 38 Year
  Sex: Male
  Weight: 85 kg

DRUGS (1)
  1. CLOZAPINE. [Suspect]
     Active Substance: CLOZAPINE
     Indication: SCHIZOAFFECTIVE DISORDER
     Dates: start: 20180918, end: 20181003

REACTIONS (3)
  - Sedation [Unknown]
  - Salivary hypersecretion [Unknown]
  - Drug intolerance [Unknown]

NARRATIVE: CASE EVENT DATE: 201810
